FAERS Safety Report 20864909 (Version 2)
Quarter: 2022Q3

REPORT INFORMATION
  Report Type: Spontaneous
  Country: US (occurrence: US)
  Receive Date: 20220524
  Receipt Date: 20220720
  Transmission Date: 20221027
  Serious: No
  Sender: FDA-Public Use
  Company Number: US-ORGANON-O2205USA001449

PATIENT
  Age: 21 Year
  Sex: Female
  Weight: 75.737 kg

DRUGS (1)
  1. NEXPLANON [Suspect]
     Active Substance: ETONOGESTREL
     Dosage: 1 IMPLANT OF 68 MG IN RIGHT UPPER ARM
     Route: 059
     Dates: start: 2016, end: 20220523

REACTIONS (5)
  - Device issue [Recovered/Resolved]
  - Complication associated with device [Recovered/Resolved]
  - Mass [Unknown]
  - Weight increased [Unknown]
  - Incorrect product administration duration [Unknown]

NARRATIVE: CASE EVENT DATE: 20190101
